FAERS Safety Report 7783053-2 (Version None)
Quarter: 2011Q3

REPORT INFORMATION
  Report Type: 
  Country: None (occurrence: None)
  Receive Date: 20110928
  Receipt Date: 20110920
  Transmission Date: 20111222
  Serious: No
  Sender: FDA-Public Use
  Company Number: US-PFIZER INC-2011199578

PATIENT
  Sex: Male
  Weight: 99.773 kg

DRUGS (8)
  1. LYRICA [Suspect]
     Indication: PAIN
     Dosage: 75 MG, 4X/DAY
     Route: 048
     Dates: start: 20060101
  2. COZAAR [Concomitant]
     Dosage: 100 MG, 1X/DAY
     Dates: start: 20110830
  3. LIPITOR [Concomitant]
     Indication: BLOOD CHOLESTEROL INCREASED
     Dosage: 10 MG, 1X/DAY
     Dates: start: 20100412
  4. CIALIS [Concomitant]
     Dosage: 20 MG AS DIRECTED
     Dates: start: 20110830
  5. BACLOFEN [Concomitant]
     Dosage: 20 MG, 4X/DAY
     Dates: start: 20110621
  6. HYDROCHLOROTHIAZIDE [Concomitant]
     Dosage: 12.5 MG, 1 EVERY MORNING AS NEEDED
     Dates: start: 20110830
  7. VALIUM [Concomitant]
     Dosage: 10 MG EVERY 6 - 8 HOURS AS NEEDED
     Dates: start: 20110830
  8. LYRICA [Suspect]
     Indication: SPINAL CORD INJURY
     Dosage: 150 MG, 2X/DAY
     Route: 048
     Dates: start: 20020101

REACTIONS (4)
  - SKIN DISORDER [None]
  - OEDEMA PERIPHERAL [None]
  - DRY SKIN [None]
  - PAIN IN EXTREMITY [None]
